FAERS Safety Report 6729861-8 (Version None)
Quarter: 2010Q2

REPORT INFORMATION
  Report Type: 
  Country: None (occurrence: None)
  Receive Date: 20100513
  Receipt Date: 20100506
  Transmission Date: 20101027
  Serious: Yes (Other)
  Sender: FDA-Public Use
  Company Number: 2010SP025922

PATIENT
  Age: 16 Year
  Sex: Male

DRUGS (4)
  1. CLARITINE (LORATADINE /00917501/) [Suspect]
     Indication: RHINITIS ALLERGIC
     Dosage: 10 MG;QD;PO
     Route: 048
     Dates: start: 20030101, end: 20100501
  2. BUDESONIDE [Concomitant]
  3. FLUTICASONE PROPIONATE [Concomitant]
  4. FORMOTEROL [Concomitant]

REACTIONS (3)
  - ALANINE AMINOTRANSFERASE INCREASED [None]
  - ASPARTATE AMINOTRANSFERASE INCREASED [None]
  - TRANSAMINASES INCREASED [None]
